FAERS Safety Report 14653168 (Version 1)
Quarter: 2018Q1

REPORT INFORMATION
  Report Type: Spontaneous
  Country: GB (occurrence: FR)
  Receive Date: 20180319
  Receipt Date: 20180319
  Transmission Date: 20180509
  Serious: Yes (Death, Other)
  Sender: FDA-Public Use
  Company Number: FR-FRESENIUS KABI-FK201803125

PATIENT
  Age: 64 Year
  Sex: Male
  Weight: 74 kg

DRUGS (7)
  1. CEFOTAXIME SODIQUE [Suspect]
     Active Substance: CEFOTAXIME SODIUM
     Indication: STREPTOCOCCAL INFECTION
     Route: 042
     Dates: start: 20180127, end: 20180216
  2. AMOXICILLINE [Suspect]
     Active Substance: AMOXICILLIN
     Indication: STREPTOCOCCAL INFECTION
     Route: 048
     Dates: start: 20180102, end: 20180108
  3. CEFTRIAXONE SODIQUE [Suspect]
     Active Substance: CEFTRIAXONE SODIUM
     Indication: STREPTOCOCCAL INFECTION
     Route: 042
     Dates: start: 20180127, end: 20180127
  4. GEMCITABINE [Suspect]
     Active Substance: GEMCITABINE\GEMCITABINE HYDROCHLORIDE
     Indication: STREPTOCOCCAL INFECTION
     Route: 042
     Dates: start: 20180127, end: 20180130
  5. CEFPODOXIME [Suspect]
     Active Substance: CEFPODOXIME
     Indication: STREPTOCOCCAL INFECTION
     Route: 048
     Dates: start: 20180110
  6. CIPROFLOXACIN (MANUFACTURER UNKNOWN) [Suspect]
     Active Substance: CIPROFLOXACIN
     Indication: STREPTOCOCCAL INFECTION
     Route: 042
     Dates: start: 20180127, end: 20180127
  7. PYOSTACINE [Suspect]
     Active Substance: PRISTINAMYCIN
     Indication: STREPTOCOCCAL INFECTION
     Route: 048
     Dates: start: 20180109

REACTIONS (1)
  - Clostridium difficile colitis [Recovering/Resolving]

NARRATIVE: CASE EVENT DATE: 20180212
